FAERS Safety Report 22229316 (Version 1)
Quarter: 2023Q2

REPORT INFORMATION
  Report Type: Spontaneous
  Country: US (occurrence: None)
  Receive Date: 20230418
  Receipt Date: 20230418
  Transmission Date: 20230722
  Serious: Yes (Hospitalization)
  Sender: FDA-Public Use
  Company Number: None

PATIENT
  Sex: Female

DRUGS (7)
  1. DALFAMPRIDINE [Suspect]
     Active Substance: DALFAMPRIDINE
     Indication: Multiple sclerosis
     Dosage: FREQUENCY : TWICE A DAY;?
     Route: 048
     Dates: start: 20181031
  2. DALFAMPRIDINE [Suspect]
     Active Substance: DALFAMPRIDINE
     Dosage: FREQUENCY : TWICE A DAY;?
     Route: 048
  3. AMIODARONE [Concomitant]
  4. DALFAMPRIDIN [Concomitant]
  5. REBIF [Concomitant]
     Active Substance: INTERFERON BETA-1A
  6. REBIDOSE [Concomitant]
  7. TOPAMAX [Concomitant]
     Active Substance: TOPIRAMATE

REACTIONS (4)
  - Dizziness [None]
  - Fall [None]
  - Mobility decreased [None]
  - Therapy interrupted [None]
